APPROVED DRUG PRODUCT: CASPOFUNGIN ACETATE
Active Ingredient: CASPOFUNGIN ACETATE
Strength: 50MG/VIAL
Dosage Form/Route: POWDER;INTRAVENOUS
Application: A200833 | Product #001 | TE Code: AP
Applicant: JIANGSU HENGRUI PHARMACEUTICALS CO LTD
Approved: Jun 28, 2018 | RLD: No | RS: Yes | Type: RX